FAERS Safety Report 10882919 (Version 1)
Quarter: 2015Q1

REPORT INFORMATION
  Report Type: Spontaneous
  Country: FR (occurrence: FR)
  Receive Date: 20150303
  Receipt Date: 20150303
  Transmission Date: 20150721
  Serious: Yes (Hospitalization)
  Sender: FDA-Public Use
  Company Number: FR-PFIZER INC-2015074755

PATIENT
  Age: 22 Year
  Sex: Female

DRUGS (6)
  1. XANAX [Suspect]
     Active Substance: ALPRAZOLAM
     Dosage: UNK, SINGLE
     Route: 048
     Dates: start: 20150125, end: 20150125
  2. DEROXAT [Suspect]
     Active Substance: PAROXETINE HYDROCHLORIDE
     Dosage: UNK, SINGLE
     Route: 048
     Dates: start: 20150125, end: 20150125
  3. ZOPICLONE [Suspect]
     Active Substance: ZOPICLONE
     Dosage: UNK, SINGLE
     Route: 048
     Dates: start: 20150125, end: 20150125
  4. XATRAL LP [Concomitant]
     Active Substance: ALFUZOSIN
     Dosage: 10 MG, DAILY
     Route: 048
  5. DIPIPERON [Concomitant]
     Active Substance: PIPAMPERONE
     Dosage: 10 DROPS THRICE DAILY (MORNING, LUNCHTIME, EVENING) AND 30 DROPS AT BEDTIME
     Route: 048
  6. TRANXENE T-TAB [Concomitant]
     Active Substance: CLORAZEPATE DIPOTASSIUM
     Dosage: 10 MG, 3X/DAY
     Route: 048

REACTIONS (5)
  - Gross motor delay [Recovering/Resolving]
  - Suicide attempt [Unknown]
  - Toxicity to various agents [Recovering/Resolving]
  - Coma [Recovering/Resolving]
  - Dizziness [Recovering/Resolving]

NARRATIVE: CASE EVENT DATE: 20150125
